FAERS Safety Report 4629795-9 (Version None)
Quarter: 2005Q2

REPORT INFORMATION
  Report Type: 
  Country: None (occurrence: None)
  Receive Date: 20050407
  Receipt Date: 20050325
  Transmission Date: 20051028
  Serious: Yes (Hospitalization)
  Sender: FDA-Public Use
  Company Number: 213509

PATIENT
  Age: 52 Year
  Sex: Female
  Weight: 58 kg

DRUGS (4)
  1. HERCEPTIN [Suspect]
     Indication: BREAST CANCER
     Dosage: SEE IMAGE
     Route: 042
     Dates: start: 20050204, end: 20050204
  2. HERCEPTIN [Suspect]
     Indication: BREAST CANCER
     Dosage: SEE IMAGE
     Route: 042
     Dates: start: 20050228, end: 20050321
  3. PACLITAXEL [Suspect]
     Indication: BREAST CANCER
     Dosage: 240 MG, Q3W, INTRAVENOUS
     Route: 042
     Dates: start: 20050204, end: 20050321
  4. DOXORUBICIN HCL [Suspect]
     Indication: BREAST CANCER
     Dosage: 96 MG, Q3W, INTRAVENOUS
     Route: 042
     Dates: start: 20050204, end: 20050321

REACTIONS (2)
  - FEBRILE NEUTROPENIA [None]
  - VOMITING [None]
